FAERS Safety Report 20630367 (Version 1)
Quarter: 2022Q1

REPORT INFORMATION
  Report Type: Spontaneous
  Country: IT (occurrence: IT)
  Receive Date: 20220324
  Receipt Date: 20220324
  Transmission Date: 20220423
  Serious: Yes (Hospitalization, Other)
  Sender: FDA-Public Use
  Company Number: IT-ABBVIE-22K-083-4328904-00

PATIENT
  Age: 61 Year
  Sex: Female

DRUGS (4)
  1. VALPROATE SODIUM [Suspect]
     Active Substance: VALPROATE SODIUM
     Indication: Intentional overdose
     Route: 048
     Dates: start: 20200822, end: 20200822
  2. CLOZAPINE [Suspect]
     Active Substance: CLOZAPINE
     Indication: Intentional overdose
     Route: 048
     Dates: start: 20200822, end: 20200822
  3. CLONAZEPAM [Suspect]
     Active Substance: CLONAZEPAM
     Indication: Intentional overdose
     Route: 048
     Dates: start: 20200822, end: 20200822
  4. PANTOPRAZOLE [Suspect]
     Active Substance: PANTOPRAZOLE
     Indication: Intentional overdose
     Route: 048
     Dates: start: 20200822, end: 20200822

REACTIONS (3)
  - Intentional overdose [Unknown]
  - Depressed level of consciousness [Not Recovered/Not Resolved]
  - Confusional state [Not Recovered/Not Resolved]

NARRATIVE: CASE EVENT DATE: 20200822
